FAERS Safety Report 8059704 (Version 2)
Quarter: 2012Q4

REPORT INFORMATION
  Report Type: 
  Country: US (occurrence: US)
  Receive Date: 20110728
  Receipt Date: 20121024
  Transmission Date: 20130627
  Serious: Yes (Other)
  Sender: FDA-Public Use
  Company Number: US-US-EMD SERONO, INC.-7071983

PATIENT
  Sex: Female

DRUGS (3)
  1. REBIF [Suspect]
     Indication: MULTIPLE SCLEROSIS
     Route: 058
     Dates: start: 20100917
  2. NAPROXEN [Concomitant]
     Indication: PAIN IN EXTREMITY
     Route: 048
  3. NAPROXEN [Concomitant]
     Indication: ARTHRALGIA

REACTIONS (4)
  - Plantar fasciitis [Not Recovered/Not Resolved]
  - Antinuclear antibody positive [Recovered/Resolved]
  - Vitamin B12 deficiency [Unknown]
  - Influenza like illness [Recovered/Resolved]
